FAERS Safety Report 9713852 (Version 4)
Quarter: 2014Q1

REPORT INFORMATION
  Report Type: Spontaneous
  Country: US (occurrence: US)
  Receive Date: 20131126
  Receipt Date: 20140307
  Transmission Date: 20141002
  Serious: Yes (Other)
  Sender: FDA-Public Use
  Company Number: US-GLAXOSMITHKLINE-A1051146A

PATIENT
  Age: 72 Year
  Sex: Male

DRUGS (1)
  1. ADVAIR [Suspect]
     Indication: RESPIRATORY DISORDER
     Route: 065
     Dates: start: 20040913

REACTIONS (4)
  - Lung neoplasm malignant [Unknown]
  - Oxygen supplementation [Unknown]
  - Suffocation feeling [Unknown]
  - Drug administration error [Unknown]
